FAERS Safety Report 23645734 (Version 1)
Quarter: 2024Q1

REPORT INFORMATION
  Report Type: Spontaneous
  Country: CN (occurrence: CN)
  Receive Date: 20240319
  Receipt Date: 20240319
  Transmission Date: 20240409
  Serious: Yes (Other)
  Sender: FDA-Public Use
  Company Number: CN-HUTCHMED LIMITED-HMP2024CN00510

PATIENT
  Age: 54 Year
  Sex: Female
  Weight: 63.8 kg

DRUGS (3)
  1. FRUQUINTINIB [Suspect]
     Active Substance: FRUQUINTINIB
     Indication: Gastric cancer
     Dosage: 5 MILLIGRAM, QD
     Route: 048
     Dates: start: 20240216, end: 20240226
  2. SINTILIMAB [Concomitant]
     Active Substance: SINTILIMAB
     Indication: Gastric cancer
     Dosage: 200 MILLIGRAM, QD
     Route: 041
     Dates: start: 20240216, end: 20240216
  3. PACLITAXEL [Concomitant]
     Active Substance: PACLITAXEL
     Indication: Gastric cancer
     Dosage: 300 MILLIGRAM, QD
     Route: 041
     Dates: start: 20240217, end: 20240217

REACTIONS (3)
  - Myelosuppression [Recovering/Resolving]
  - Hypoaesthesia [Unknown]
  - Off label use [Unknown]

NARRATIVE: CASE EVENT DATE: 20240216
